FAERS Safety Report 10085652 (Version 2)
Quarter: 2014Q2

REPORT INFORMATION
  Report Type: Report from Study
  Country: CA (occurrence: CA)
  Receive Date: 20140418
  Receipt Date: 20140530
  Transmission Date: 20141212
  Serious: Yes (Hospitalization, Other)
  Sender: FDA-Public Use
  Company Number: CA-JNJFOC-20140408676

PATIENT
  Age: 34 Year
  Sex: Female
  Weight: 70.76 kg

DRUGS (1)
  1. REMICADE [Suspect]
     Indication: CROHN^S DISEASE
     Route: 042
     Dates: start: 20090303

REACTIONS (7)
  - Appendicectomy [Recovering/Resolving]
  - Haematoma [Unknown]
  - Sepsis [Unknown]
  - Colectomy [Unknown]
  - Small intestinal resection [Unknown]
  - Fatigue [Unknown]
  - Discomfort [Unknown]
